FAERS Safety Report 13540294 (Version 1)
Quarter: 2017Q2

REPORT INFORMATION
  Report Type: Spontaneous
  Country: QA (occurrence: QA)
  Receive Date: 20170512
  Receipt Date: 20170512
  Transmission Date: 20170830
  Serious: Yes (Other)
  Sender: FDA-Public Use
  Company Number: QA-DEPOMED, INC.-QA-2017DEP000928

PATIENT
  Age: 60 Year
  Sex: Male

DRUGS (2)
  1. FENTANYL. [Suspect]
     Active Substance: FENTANYL
     Indication: SEDATIVE THERAPY
     Dosage: 50 ?G, SINGLE SLOW INFUSION
     Route: 042
  2. MIDAZOLAM [Concomitant]
     Active Substance: MIDAZOLAM HYDROCHLORIDE
     Indication: SEDATIVE THERAPY
     Dosage: 2 MG, SINGLE SLOW INFUSION
     Route: 042

REACTIONS (4)
  - Muscle rigidity [Recovered/Resolved]
  - Hyporesponsive to stimuli [Recovered/Resolved]
  - Muscle tightness [Recovered/Resolved]
  - Respiratory acidosis [Recovered/Resolved]
